FAERS Safety Report 14219117 (Version 2)
Quarter: 2018Q1

REPORT INFORMATION
  Report Type: Spontaneous
  Country: US (occurrence: US)
  Receive Date: 20171123
  Receipt Date: 20180108
  Transmission Date: 20180508
  Serious: No
  Sender: FDA-Public Use
  Company Number: US-JNJFOC-20171108141

PATIENT
  Age: 67 Year
  Sex: Female

DRUGS (16)
  1. LOTEPREDNOL ETABONATE [Concomitant]
     Active Substance: LOTEPREDNOL ETABONATE
     Dosage: 180
     Route: 047
     Dates: start: 20131002
  2. LORAZEPAM. [Concomitant]
     Active Substance: LORAZEPAM
     Dosage: 90
     Route: 048
     Dates: start: 20171024
  3. MYRBETRIQ [Concomitant]
     Active Substance: MIRABEGRON
     Dosage: 10-12.5 MG
     Route: 065
     Dates: start: 20120206
  4. STELARA [Suspect]
     Active Substance: USTEKINUMAB
     Indication: PSORIATIC ARTHROPATHY
     Route: 058
     Dates: start: 20170816
  5. ATIVAN [Concomitant]
     Active Substance: LORAZEPAM
     Dosage: 90
     Route: 048
     Dates: start: 20121004
  6. STELARA [Suspect]
     Active Substance: USTEKINUMAB
     Indication: PSORIATIC ARTHROPATHY
     Route: 058
     Dates: start: 20171213
  7. FAMOTIDINE. [Concomitant]
     Active Substance: FAMOTIDINE
     Dosage: 90
     Route: 048
     Dates: start: 20170302
  8. HYDROCHLOROTHIAZIDE AND LISINOPRIL [Concomitant]
     Active Substance: HYDROCHLOROTHIAZIDE\LISINOPRIL
     Dosage: 10-12.5 MG
     Route: 048
     Dates: start: 20120206
  9. CYCLOSPORINE. [Concomitant]
     Active Substance: CYCLOSPORINE
     Dosage: 90
     Route: 048
     Dates: start: 20160628
  10. CELECOXIB. [Concomitant]
     Active Substance: CELECOXIB
     Dosage: 1
     Route: 048
  11. CLOBETASOL [Concomitant]
     Active Substance: CLOBETASOL
     Indication: PSORIASIS
     Dosage: 1WEEK ON AND ONE WEEK OFF
     Route: 061
     Dates: start: 20160901
  12. DULOXETINE. [Concomitant]
     Active Substance: DULOXETINE
     Dosage: 90
     Route: 048
     Dates: start: 20160509
  13. FOLIC ACID. [Concomitant]
     Active Substance: FOLIC ACID
     Dosage: 90
     Route: 048
     Dates: start: 20161110
  14. TRAMADOL. [Concomitant]
     Active Substance: TRAMADOL
     Dosage: AS NEEDED (6-8)
     Route: 048
     Dates: start: 20171024
  15. STELARA [Suspect]
     Active Substance: USTEKINUMAB
     Indication: PSORIATIC ARTHROPATHY
     Route: 058
     Dates: start: 20170914
  16. LOTEMAX [Concomitant]
     Active Substance: LOTEPREDNOL ETABONATE
     Dosage: 90
     Route: 047
     Dates: start: 20171020

REACTIONS (1)
  - Alopecia [Unknown]

NARRATIVE: CASE EVENT DATE: 201708
